FAERS Safety Report 22066748 (Version 2)
Quarter: 2023Q1

REPORT INFORMATION
  Report Type: Report from Study
  Country: US (occurrence: US)
  Receive Date: 20230306
  Receipt Date: 20230313
  Transmission Date: 20230418
  Serious: No
  Sender: FDA-Public Use
  Company Number: US-AGIOS-2302US03275

PATIENT
  Sex: Female

DRUGS (2)
  1. MITAPIVAT [Suspect]
     Active Substance: MITAPIVAT
     Indication: Hereditary haemolytic anaemia
     Dosage: 5 MILLIGRAM
     Route: 048
     Dates: start: 20230209
  2. IBUPROFEN [Concomitant]
     Active Substance: IBUPROFEN
     Indication: Product used for unknown indication

REACTIONS (6)
  - Illness [Unknown]
  - Fatigue [Unknown]
  - Mood altered [Unknown]
  - Dysphagia [Unknown]
  - Vomiting [Unknown]
  - Asthenia [Unknown]
